FAERS Safety Report 5756679-5 (Version None)
Quarter: 2008Q2

REPORT INFORMATION
  Report Type: 
  Country: None (occurrence: None)
  Receive Date: 20080529
  Receipt Date: 20080515
  Transmission Date: 20081010
  Serious: Yes (Hospitalization)
  Sender: FDA-Public Use
  Company Number: 2008SP001107

PATIENT
  Age: 5 Year
  Sex: Female
  Weight: 16.5 kg

DRUGS (13)
  1. XOPENEX [Suspect]
     Indication: RESPIRATORY DISTRESS
     Dosage: PRN; INHALATION; 1.25 MG/3/ML;PRN; INHALATION; 1.25 MG/3ML; INHALATION
     Route: 055
  2. VITAMIN A [Suspect]
     Dosage: 500000 IU; QD;
     Dates: start: 20060101, end: 20060701
  3. SINGULAIR [Concomitant]
  4. MINERAL SUPPLEMENTS [Concomitant]
  5. IMMUNOSUPPRESSIVE [Concomitant]
  6. AGENTS [Concomitant]
  7. ZINC [Concomitant]
  8. VITAMIN B COMPLEX CAP [Concomitant]
  9. VITAMIN B-12 [Concomitant]
  10. ASCORBIC ACID [Concomitant]
  11. FLAXSEED OIL [Concomitant]
  12. ENZYMES [Concomitant]
  13. VITAMIN D [Concomitant]

REACTIONS (16)
  - ANOREXIA [None]
  - BLOOD GLUCOSE INCREASED [None]
  - BLOOD HEAVY METAL INCREASED [None]
  - DRUG INEFFECTIVE [None]
  - DRUG TOXICITY [None]
  - HYPERCALCAEMIA [None]
  - HYPERVITAMINOSIS D [None]
  - IATROGENIC INJURY [None]
  - INCORRECT DOSE ADMINISTERED [None]
  - LYMPHOCYTE COUNT INCREASED [None]
  - MALAISE [None]
  - MEDICATION ERROR [None]
  - NAUSEA [None]
  - PEAK EXPIRATORY FLOW RATE DECREASED [None]
  - PLATELET COUNT INCREASED [None]
  - POLLAKIURIA [None]
